FAERS Safety Report 9263224 (Version 1)
Quarter: 2013Q2

REPORT INFORMATION
  Report Type: Spontaneous
  Country: US (occurrence: None)
  Receive Date: 20130429
  Receipt Date: 20130429
  Transmission Date: 20140414
  Serious: Yes (Death)
  Sender: FDA-Public Use
  Company Number: None

PATIENT
  Sex: Male

DRUGS (1)
  1. TENECTEPLASE [Suspect]
     Indication: MYOCARDIAL INFARCTION
     Dates: start: 20111022

REACTIONS (3)
  - Head injury [None]
  - Brain herniation [None]
  - Haemorrhage [None]
